FAERS Safety Report 14503048 (Version 1)
Quarter: 2018Q1

REPORT INFORMATION
  Report Type: Spontaneous
  Country: US (occurrence: US)
  Receive Date: 20180207
  Receipt Date: 20180207
  Transmission Date: 20180509
  Serious: Yes (Death)
  Sender: FDA-Public Use
  Company Number: None

PATIENT
  Age: 84 Year
  Sex: Female

DRUGS (15)
  1. ENBREL [Suspect]
     Active Substance: ETANERCEPT
     Indication: RHEUMATOID ARTHRITIS
     Dosage: 25 MG TWICE WQEEKLY UNDER THE SKIN
     Dates: start: 20170522, end: 2018
  2. BREO ELLIPTA [Concomitant]
     Active Substance: FLUTICASONE FUROATE\VILANTEROL TRIFENATATE
  3. CARB/LEVO [Concomitant]
     Active Substance: CARBIDOPA\LEVODOPA
  4. CHLORHEX GLU [Concomitant]
  5. SINEMET CR [Concomitant]
     Active Substance: CARBIDOPA\LEVODOPA
  6. FOLIC ACID. [Concomitant]
     Active Substance: FOLIC ACID
  7. MEMANTINE. [Concomitant]
     Active Substance: MEMANTINE
  8. METHOTREXATE. [Concomitant]
     Active Substance: METHOTREXATE
  9. RESPERIDONE [Concomitant]
     Active Substance: RISPERIDONE
  10. OMEPRAZOLE. [Concomitant]
     Active Substance: OMEPRAZOLE
  11. SIMBRINZA [Concomitant]
     Active Substance: BRIMONIDINE TARTRATE\BRINZOLAMIDE
  12. DONEPEZIL. [Concomitant]
     Active Substance: DONEPEZIL
  13. HYDROCO/APAP [Concomitant]
     Active Substance: ACETAMINOPHEN\HYDROCODONE
  14. IBU [Concomitant]
     Active Substance: IBUPROFEN
  15. TRAVATAN Z [Concomitant]
     Active Substance: TRAVOPROST

REACTIONS (1)
  - Chest pain [None]

NARRATIVE: CASE EVENT DATE: 2018
